FAERS Safety Report 6276166-8 (Version None)
Quarter: 2009Q3

REPORT INFORMATION
  Report Type: 
  Country: None (occurrence: None)
  Receive Date: 20090722
  Receipt Date: 20090714
  Transmission Date: 20100115
  Serious: Yes (Death)
  Sender: FDA-Public Use
  Company Number: TR-ELI_LILLY_AND_COMPANY-TR200907002692

PATIENT
  Age: 58 Year
  Sex: Female

DRUGS (5)
  1. HUMALOG MIX 50/50 [Suspect]
     Dosage: 40 U, EACH MORNING
     Route: 058
  2. HUMALOG MIX 50/50 [Suspect]
     Dosage: 40 U, EACH NOON
     Route: 058
  3. HUMALOG MIX 50/50 [Suspect]
     Dosage: 40 U, EACH EVENING
     Route: 058
  4. ANTIHYPERTENSIVES [Concomitant]
     Indication: HYPERTENSION
     Dosage: UNK, DAILY (1/D)
     Route: 048
  5. CHOLESTEROL- AND TRIGLYCERIDE REDUCERS [Concomitant]
     Indication: BLOOD CHOLESTEROL
     Dosage: UNK, DAILY (1/D)
     Route: 048

REACTIONS (2)
  - ABDOMINAL PAIN [None]
  - DEATH [None]
